FAERS Safety Report 6730374-8 (Version None)
Quarter: 2010Q2

REPORT INFORMATION
  Report Type: 
  Country: None (occurrence: None)
  Receive Date: 20100518
  Receipt Date: 20100507
  Transmission Date: 20101027
  Serious: Yes (Hospitalization)
  Sender: FDA-Public Use
  Company Number: A0791311A

PATIENT
  Age: 48 Year
  Sex: Female

DRUGS (1)
  1. AVANDIA [Suspect]
     Indication: DIABETES MELLITUS
     Dosage: 4U TWICE PER DAY
     Route: 065
     Dates: start: 19991201, end: 20070501

REACTIONS (5)
  - CEREBROVASCULAR ACCIDENT [None]
  - DYSPNOEA [None]
  - DYSSTASIA [None]
  - GAIT DISTURBANCE [None]
  - JOINT SWELLING [None]
